FAERS Safety Report 8788999 (Version 3)
Quarter: 2013Q2

REPORT INFORMATION
  Report Type: Spontaneous
  Country: GB (occurrence: GB)
  Receive Date: 20120917
  Receipt Date: 20130523
  Transmission Date: 20140414
  Serious: Yes (Disabling)
  Sender: FDA-Public Use
  Company Number: GB-009507513-1209GBR002095

PATIENT
  Age: 59 Year
  Sex: Female

DRUGS (55)
  1. ZISPIN SOLTAB [Suspect]
     Indication: DEPRESSION
     Dosage: 30 MG, UNK
     Route: 048
     Dates: start: 20100922
  2. ZISPIN SOLTAB [Suspect]
     Dosage: 45 MG, UNK
     Route: 048
     Dates: start: 20100929
  3. ZISPIN SOLTAB [Suspect]
     Dosage: 30 MG, UNK
     Route: 048
     Dates: start: 20110111
  4. ZISPIN SOLTAB [Suspect]
     Dosage: 30 MG, UNK
     Route: 048
     Dates: start: 20110125
  5. ZISPIN SOLTAB [Suspect]
     Dosage: 30 MG, UNK
     Route: 048
     Dates: start: 20110222
  6. ZISPIN SOLTAB [Suspect]
     Dosage: 15 MG, UNK
     Route: 048
     Dates: start: 20110223
  7. ZISPIN SOLTAB [Suspect]
     Dosage: 30 MG, UNK
     Route: 048
     Dates: start: 20110228
  8. ZISPIN SOLTAB [Suspect]
     Dosage: 45 MG, UNK
     Route: 048
     Dates: start: 20110321
  9. ZISPIN SOLTAB [Suspect]
     Dosage: 45 MG, UNK
     Route: 048
     Dates: start: 20110411
  10. ZISPIN SOLTAB [Suspect]
     Dosage: 45 MG, UNK
     Route: 048
     Dates: start: 20110531
  11. ZISPIN SOLTAB [Suspect]
     Dosage: 45 MG, UNK
     Route: 048
     Dates: start: 20110726
  12. ZISPIN SOLTAB [Suspect]
     Dosage: 45 MG, UNK
     Route: 048
     Dates: start: 20110803
  13. ZISPIN SOLTAB [Suspect]
     Dosage: 45 MG, UNK
     Route: 048
     Dates: start: 20111011
  14. ZISPIN SOLTAB [Suspect]
     Dosage: 30 MG, UNK
     Route: 048
     Dates: start: 20111202
  15. ZISPIN SOLTAB [Suspect]
     Dosage: 30 MG, UNK
     Route: 048
     Dates: start: 20111212
  16. ZISPIN SOLTAB [Suspect]
     Dosage: 30 MG, UNK
     Route: 048
     Dates: start: 20120118
  17. ZISPIN SOLTAB [Suspect]
     Dosage: 30 MG, UNK
     Route: 048
     Dates: start: 20120125
  18. ZISPIN SOLTAB [Suspect]
     Dosage: 30 MG, UNK
     Route: 048
     Dates: start: 20120203
  19. ZISPIN SOLTAB [Suspect]
     Dosage: 15 MG, UNK
     Route: 048
     Dates: start: 20120424, end: 201205
  20. BUMETANIDE [Concomitant]
     Dosage: 1 MG, UNK
     Dates: start: 20120617, end: 20120802
  21. DIPROBASE [Concomitant]
     Dosage: UNK
     Dates: start: 2012
  22. DULOXETINE HYDROCHLORIDE [Concomitant]
     Indication: DEPRESSION
     Dosage: UNK
     Dates: start: 20120118
  23. DULOXETINE HYDROCHLORIDE [Concomitant]
     Dosage: 30 UNK, UNK
     Dates: start: 20120203
  24. DULOXETINE HYDROCHLORIDE [Concomitant]
     Dosage: 30 MG, UNK
     Dates: start: 20120501
  25. DULOXETINE HYDROCHLORIDE [Concomitant]
     Dosage: 60 MG, UNK
     Dates: start: 20120504, end: 20120518
  26. EUMOVATE [Concomitant]
     Indication: DRY SKIN
     Dosage: UNK
     Dates: start: 20120617
  27. FUROSEMIDE [Concomitant]
     Dosage: 40 MG, UNK
     Dates: start: 20120328, end: 20120517
  28. FUROSEMIDE [Concomitant]
     Dosage: UNK
     Dates: end: 20120517
  29. SERTRALINE HYDROCHLORIDE [Concomitant]
     Indication: DEPRESSION
     Dosage: 50 MG, UNK
     Dates: start: 20110111
  30. SERTRALINE HYDROCHLORIDE [Concomitant]
     Dosage: 100 MG, UNK
     Dates: start: 20110125
  31. SERTRALINE HYDROCHLORIDE [Concomitant]
     Dosage: 150 MG, UNK
     Dates: start: 20110222
  32. SERTRALINE HYDROCHLORIDE [Concomitant]
     Dosage: 150 MG, UNK
     Dates: start: 20110223
  33. SERTRALINE HYDROCHLORIDE [Concomitant]
     Dosage: 150 MG, UNK
     Dates: start: 20110228
  34. SERTRALINE HYDROCHLORIDE [Concomitant]
     Dosage: 100 MG, UNK
     Dates: start: 20110321
  35. SERTRALINE HYDROCHLORIDE [Concomitant]
     Dosage: 100 MG, UNK
     Dates: start: 20110411
  36. SERTRALINE HYDROCHLORIDE [Concomitant]
     Dosage: 100 MG, UNK
     Dates: start: 20110531
  37. SERTRALINE HYDROCHLORIDE [Concomitant]
     Dosage: 150 MG, UNK
     Dates: start: 20110726
  38. SERTRALINE HYDROCHLORIDE [Concomitant]
     Dosage: 100 MG, UNK
     Dates: start: 20110803
  39. SERTRALINE HYDROCHLORIDE [Concomitant]
     Dosage: 100 MG, UNK
     Dates: start: 20111011
  40. SERTRALINE HYDROCHLORIDE [Concomitant]
     Dosage: 150 MG, UNK
     Dates: start: 20111202
  41. SERTRALINE HYDROCHLORIDE [Concomitant]
     Dosage: 200 MG, UNK
     Dates: start: 20111212
  42. SERTRALINE HYDROCHLORIDE [Concomitant]
     Dosage: 100 MG, UNK
     Dates: start: 20120118
  43. SERTRALINE HYDROCHLORIDE [Concomitant]
     Dosage: 50 MG, UNK
     Dates: start: 20120125
  44. VENLAFAXINE HYDROCHLORIDE [Concomitant]
     Dosage: 75 MG, UNK
     Dates: start: 20100118
  45. VENLAFAXINE HYDROCHLORIDE [Concomitant]
     Dosage: 37.5 MG, UNK
     Dates: start: 20100522
  46. VENLAFAXINE HYDROCHLORIDE [Concomitant]
     Dosage: 37.5 MG, UNK
     Dates: start: 20100510
  47. VENLAFAXINE HYDROCHLORIDE [Concomitant]
     Dosage: 37.5 MG, UNK
     Dates: start: 20100628
  48. VENLAFAXINE HYDROCHLORIDE [Concomitant]
     Dosage: 31.5 MG, UNK
     Dates: start: 20120809
  49. VENLAFAXINE HYDROCHLORIDE [Concomitant]
     Dosage: 150 MG, UNK
     Dates: start: 20120907
  50. VENLAFAXINE HYDROCHLORIDE [Concomitant]
     Dosage: 75 MG, UNK
     Dates: start: 20100915
  51. VENLAFAXINE HYDROCHLORIDE [Concomitant]
     Dosage: 75 MG, UNK
     Dates: start: 20100922
  52. VENLAFAXINE HYDROCHLORIDE [Concomitant]
     Dosage: 150 MG, UNK
     Dates: start: 20120525
  53. VENLAFAXINE HYDROCHLORIDE [Concomitant]
     Dosage: 75 MG, UNK
     Dates: start: 20120506
  54. VENLAFAXINE HYDROCHLORIDE [Concomitant]
     Dosage: 225 MG, UNK
     Dates: start: 20120615
  55. VENLAFAXINE HYDROCHLORIDE [Concomitant]
     Dosage: 37.5 MG, UNK
     Dates: start: 20100222

REACTIONS (4)
  - Lymphoedema [Unknown]
  - Local swelling [Recovering/Resolving]
  - Oedema peripheral [Recovering/Resolving]
  - Weight increased [Recovering/Resolving]
